FAERS Safety Report 7811040-4 (Version None)
Quarter: 2011Q4

REPORT INFORMATION
  Report Type: 
  Country: None (occurrence: None)
  Receive Date: 20111013
  Receipt Date: 20110928
  Transmission Date: 20120403
  Serious: Yes (Hospitalization, Other)
  Sender: FDA-Public Use
  Company Number: US-BAYER-2011-011912

PATIENT
  Age: 34 Year
  Sex: Female
  Weight: 83.447 kg

DRUGS (5)
  1. YASMIN [Suspect]
     Indication: CONTRACEPTION
     Dosage: UNK
     Dates: start: 20011019, end: 20011203
  2. PRENATAL VITAMINS [VIT C,VIT H,MIN NOS,VIT PP,RETINOL,VIT E,VIT B [Concomitant]
     Dosage: UNK
     Dates: start: 20000101, end: 20050101
  3. NAPROXEN [Concomitant]
     Dosage: UNK
     Dates: start: 20001201, end: 20070201
  4. ZITHROMAX [Concomitant]
     Dosage: UNK
     Dates: start: 20001201, end: 20051117
  5. HERBAL PREPARATION [Concomitant]
     Dosage: UNK
     Dates: start: 20011201

REACTIONS (15)
  - THROMBOSIS [None]
  - OEDEMA PERIPHERAL [None]
  - GENERAL PHYSICAL HEALTH DETERIORATION [None]
  - FEAR [None]
  - DIZZINESS [None]
  - ANXIETY [None]
  - CYANOSIS [None]
  - MIGRAINE [None]
  - PAIN [None]
  - SWELLING FACE [None]
  - SUBCLAVIAN VEIN THROMBOSIS [None]
  - PAIN IN EXTREMITY [None]
  - MUSCULOSKELETAL PAIN [None]
  - INJURY [None]
  - EMOTIONAL DISTRESS [None]
